FAERS Safety Report 14593072 (Version 1)
Quarter: 2018Q1

REPORT INFORMATION
  Report Type: Spontaneous
  Country: US (occurrence: US)
  Receive Date: 20180302
  Receipt Date: 20180302
  Transmission Date: 20180509
  Serious: No
  Sender: FDA-Public Use
  Company Number: None

PATIENT
  Age: 75 Year
  Sex: Male
  Weight: 104.33 kg

DRUGS (6)
  1. GRAPE SEED [Concomitant]
     Active Substance: HERBALS\VITIS VINIFERA SEED
  2. PRAVASTATIN. [Suspect]
     Active Substance: PRAVASTATIN
     Indication: BLOOD CHOLESTEROL
     Dosage: DOSE + FREQUENCY - 1 AT NIGHT
     Route: 048
     Dates: start: 20170601, end: 20180207
  3. COQ10 [Concomitant]
     Active Substance: UBIDECARENONE
  4. FISH OIL [Concomitant]
     Active Substance: FISH OIL
  5. VITAMIN D3 [Concomitant]
     Active Substance: CHOLECALCIFEROL
  6. CALCIUM CITRATE [Concomitant]
     Active Substance: CALCIUM CITRATE

REACTIONS (1)
  - Blood glucose increased [None]

NARRATIVE: CASE EVENT DATE: 20180206
